FAERS Safety Report 21394537 (Version 1)
Quarter: 2022Q3

REPORT INFORMATION
  Report Type: Spontaneous
  Country: FR (occurrence: FR)
  Receive Date: 20220930
  Receipt Date: 20220930
  Transmission Date: 20221027
  Serious: Yes (Hospitalization)
  Sender: FDA-Public Use
  Company Number: None

PATIENT
  Age: 31 Year
  Sex: Male

DRUGS (7)
  1. MIRTAZAPINE [Suspect]
     Active Substance: MIRTAZAPINE
     Dosage: MIRTAZAPINE 15 MG, TABLET, POSOLOGY WAS NOT REPORTED
     Route: 048
  2. CANNABIS SATIVA SUBSP. INDICA TOP [Suspect]
     Active Substance: CANNABIS SATIVA SUBSP. INDICA TOP
     Dosage: (SMOKING) 2 JOINTS, PER DAY
     Route: 055
  3. ALCOHOL [Suspect]
     Active Substance: ALCOHOL
     Dosage: NOT SPECIFIED
     Route: 048
  4. METHADONE HYDROCHLORIDE [Suspect]
     Active Substance: METHADONE HYDROCHLORIDE
     Dosage: METHADONE, SYRUP, POSOLOGY WAS NOT REPORTED
     Route: 048
  5. IMOVANE [Suspect]
     Active Substance: ZOPICLONE
     Dosage: NOT SPECIFIED (SCORED FILM COATED TABLET)
     Route: 048
  6. LEVOMEPROMAZINE [Suspect]
     Active Substance: LEVOMEPROMAZINE
     Dosage: NOT SPECIFIED (SCORED FILM COATED TABLET)
     Route: 048
  7. TRANXENE [Suspect]
     Active Substance: CLORAZEPATE DIPOTASSIUM
     Dosage: NOT SPECIFIED
     Route: 048

REACTIONS (6)
  - Miosis [Recovered/Resolved]
  - Respiratory rate decreased [Recovered/Resolved]
  - Toxicity to various agents [Recovered/Resolved]
  - Somnolence [Recovered/Resolved]
  - Drug abuse [Not Recovered/Not Resolved]
  - Oxygen saturation decreased [Recovered/Resolved]

NARRATIVE: CASE EVENT DATE: 20210716
